FAERS Safety Report 11692198 (Version 1)
Quarter: 2015Q4

REPORT INFORMATION
  Report Type: Report from Study
  Country: US (occurrence: US)
  Receive Date: 20151103
  Receipt Date: 20151103
  Transmission Date: 20160304
  Serious: Yes (Hospitalization, Other)
  Sender: FDA-Public Use
  Company Number: US-ROCHE-1637025

PATIENT
  Age: 84 Year
  Sex: Female
  Weight: 71.28 kg

DRUGS (6)
  1. HCTZ [Concomitant]
     Active Substance: HYDROCHLOROTHIAZIDE
     Indication: BLOOD PRESSURE MEASUREMENT
     Dosage: WAS TAKING BEFORE ERIVEDGE
     Route: 048
     Dates: end: 20150917
  2. ATENOLOL. [Concomitant]
     Active Substance: ATENOLOL
     Route: 048
  3. ERIVEDGE [Suspect]
     Active Substance: VISMODEGIB
     Route: 048
     Dates: start: 20150817, end: 20150922
  4. LOVASTATIN. [Concomitant]
     Active Substance: LOVASTATIN
     Indication: BLOOD CHOLESTEROL
     Dosage: TAKING BEFORE ERIVEDGE
     Route: 048
  5. DYMISTA [Suspect]
     Active Substance: AZELASTINE HYDROCHLORIDE\FLUTICASONE PROPIONATE
     Indication: HYPERSENSITIVITY
     Route: 045
  6. ERIVEDGE [Suspect]
     Active Substance: VISMODEGIB
     Indication: BASAL CELL CARCINOMA
     Route: 048
     Dates: start: 20150805, end: 20150922

REACTIONS (29)
  - Alopecia [Unknown]
  - Pruritus [Recovered/Resolved]
  - Muscle spasms [Recovered/Resolved]
  - Hepatitis acute [Recovering/Resolving]
  - Ovarian cyst [Unknown]
  - Viral infection [Recovered/Resolved]
  - Nausea [Recovered/Resolved with Sequelae]
  - Throat irritation [Not Recovered/Not Resolved]
  - Duodenal ulcer [Unknown]
  - Pyrexia [Recovered/Resolved]
  - Ageusia [Not Recovered/Not Resolved]
  - Asthenia [Recovering/Resolving]
  - Depressed mood [Not Recovered/Not Resolved]
  - Blood bilirubin increased [Unknown]
  - Fatigue [Not Recovered/Not Resolved]
  - Cough [Not Recovered/Not Resolved]
  - Constipation [Unknown]
  - Hepatotoxicity [Recovering/Resolving]
  - Feeling abnormal [Unknown]
  - Dysgeusia [Not Recovered/Not Resolved]
  - Weight decreased [Not Recovered/Not Resolved]
  - Constipation [Recovering/Resolving]
  - Blood sodium decreased [Unknown]
  - Nasopharyngitis [Not Recovered/Not Resolved]
  - Jaundice [Recovering/Resolving]
  - Gastric ulcer [Unknown]
  - Pain [Not Recovered/Not Resolved]
  - Depression [Not Recovered/Not Resolved]
  - Decreased appetite [Not Recovered/Not Resolved]

NARRATIVE: CASE EVENT DATE: 20150810
